FAERS Safety Report 11975291 (Version 2)
Quarter: 2016Q1

REPORT INFORMATION
  Report Type: Report from Study
  Country: CO (occurrence: CO)
  Receive Date: 20160128
  Receipt Date: 20160211
  Transmission Date: 20160526
  Serious: No
  Sender: FDA-Public Use
  Company Number: PHHY2016CO011471

PATIENT
  Sex: Female
  Weight: 88 kg

DRUGS (1)
  1. AFINITOR [Suspect]
     Active Substance: EVEROLIMUS
     Indication: BREAST CANCER
     Dosage: 10 MG, QD
     Route: 048
     Dates: start: 20151105, end: 201601

REACTIONS (6)
  - Bone pain [Unknown]
  - Ear pain [Unknown]
  - Pain [Unknown]
  - Headache [Unknown]
  - Malaise [Unknown]
  - Dizziness [Unknown]
